FAERS Safety Report 20689762 (Version 1)
Quarter: 2022Q2

REPORT INFORMATION
  Report Type: Spontaneous
  Country: US (occurrence: None)
  Receive Date: 20220407
  Receipt Date: 20220407
  Transmission Date: 20220721
  Serious: No
  Sender: FDA-Public Use
  Company Number: None

PATIENT
  Age: 60 Year
  Sex: Female
  Weight: 110.25 kg

DRUGS (12)
  1. TRULICITY [Suspect]
     Active Substance: DULAGLUTIDE
     Indication: Type 2 diabetes mellitus
     Dosage: FREQUENCY : WEEKLY;?
     Route: 058
     Dates: start: 20220221, end: 20220328
  2. METFORMIN [Concomitant]
     Active Substance: METFORMIN HYDROCHLORIDE
  3. TAMOXIFEN [Concomitant]
     Active Substance: TAMOXIFEN
  4. Serevent (discus) [Concomitant]
  5. LOSARTAN [Concomitant]
     Active Substance: LOSARTAN
  6. MONTELUKAST [Concomitant]
     Active Substance: MONTELUKAST SODIUM
  7. HUMULIN NOS [Concomitant]
     Active Substance: INSULIN HUMAN
  8. DEVICE [Concomitant]
     Active Substance: DEVICE
  9. ZYRTEC [Concomitant]
     Active Substance: CETIRIZINE HYDROCHLORIDE
  10. PRILOSEC [Concomitant]
     Active Substance: OMEPRAZOLE MAGNESIUM
  11. IRON [Concomitant]
     Active Substance: IRON
  12. VITAMIN C [Concomitant]
     Active Substance: ASCORBIC ACID

REACTIONS (16)
  - Mood altered [None]
  - Fear of death [None]
  - Nausea [None]
  - Diarrhoea [None]
  - Retching [None]
  - Dizziness [None]
  - Fatigue [None]
  - Insomnia [None]
  - Crying [None]
  - Feeling of despair [None]
  - Fear [None]
  - Depressed mood [None]
  - Emotional distress [None]
  - Suicidal ideation [None]
  - Thinking abnormal [None]
  - Adverse drug reaction [None]

NARRATIVE: CASE EVENT DATE: 20220321
